FAERS Safety Report 17519739 (Version 1)
Quarter: 2020Q1

REPORT INFORMATION
  Report Type: Spontaneous
  Country: US (occurrence: US)
  Receive Date: 20200309
  Receipt Date: 20200309
  Transmission Date: 20200409
  Serious: Yes (Other)
  Sender: FDA-Public Use
  Company Number: US-BRECKENRIDGE PHARMACEUTICAL, INC.-2081430

PATIENT
  Age: 37 Year
  Sex: Male
  Weight: 65.91 kg

DRUGS (4)
  1. UNSPECIFIED AGENT FROM STEROID CATEGORY [Concomitant]
  2. CETIRIZINE [Concomitant]
     Active Substance: CETIRIZINE HYDROCHLORIDE
  3. BENADRYL [Concomitant]
     Active Substance: DIPHENHYDRAMINE HYDROCHLORIDE
  4. TERBINAFINE HYDROCHLORIDE TABLET [Suspect]
     Active Substance: TERBINAFINE HYDROCHLORIDE
     Indication: ONYCHOMYCOSIS
     Route: 048

REACTIONS (2)
  - Renal disorder [None]
  - Erythema multiforme [None]
